FAERS Safety Report 7855052-3 (Version None)
Quarter: 2011Q4

REPORT INFORMATION
  Report Type: 
  Country: None (occurrence: None)
  Receive Date: 20111026
  Receipt Date: 20111017
  Transmission Date: 20120403
  Serious: Yes (Death)
  Sender: FDA-Public Use
  Company Number: CH-GILEAD-2011-0045463

PATIENT
  Sex: Male

DRUGS (4)
  1. ATRIPLA [Suspect]
     Indication: HIV INFECTION
     Dosage: UNK
     Dates: start: 20110804, end: 20110810
  2. TRUVADA [Suspect]
     Indication: HIV INFECTION
     Dosage: UNK
     Dates: start: 20110901, end: 20110920
  3. COTRIM [Concomitant]
     Indication: ANTIFUNGAL PROPHYLAXIS
     Dosage: 1 DF, QD
     Route: 048
     Dates: start: 20110804, end: 20110817
  4. ISENTRESS [Suspect]
     Indication: HIV INFECTION
     Dosage: UNK
     Dates: start: 20110901, end: 20110920

REACTIONS (6)
  - PARANOIA [None]
  - ANXIETY [None]
  - INSOMNIA [None]
  - NIGHTMARE [None]
  - COMPLETED SUICIDE [None]
  - DEPRESSION [None]
